FAERS Safety Report 15626723 (Version 3)
Quarter: 2018Q4

REPORT INFORMATION
  Report Type: Report from Study
  Country: US (occurrence: US)
  Receive Date: 20181116
  Receipt Date: 20181219
  Transmission Date: 20190205
  Serious: No
  Sender: FDA-Public Use
  Company Number: US-JAZZ-2018-US-014151

PATIENT
  Age: 59 Year
  Sex: Male

DRUGS (28)
  1. XYREM [Suspect]
     Active Substance: SODIUM OXYBATE
     Dosage: 3.5 G, BID
     Route: 048
     Dates: start: 2018
  2. ASPRIN [Concomitant]
     Active Substance: ASPIRIN
  3. VITAMIN B12 [Concomitant]
     Active Substance: CYANOCOBALAMIN
  4. ZANTAC [Concomitant]
     Active Substance: RANITIDINE HYDROCHLORIDE
  5. ZYRTEC [Concomitant]
     Active Substance: CETIRIZINE HYDROCHLORIDE
  6. XYREM [Suspect]
     Active Substance: SODIUM OXYBATE
     Dosage: DOSE ADJUSTMENTS
     Route: 048
     Dates: start: 201711, end: 201808
  7. ADDERALL [Concomitant]
     Active Substance: AMPHETAMINE ASPARTATE\AMPHETAMINE SULFATE\DEXTROAMPHETAMINE SACCHARATE\DEXTROAMPHETAMINE SULFATE
  8. AMBIEN [Concomitant]
     Active Substance: ZOLPIDEM TARTRATE
  9. MOBIC [Concomitant]
     Active Substance: MELOXICAM
  10. VITAMIN C [Concomitant]
     Active Substance: ASCORBIC ACID
  11. FLAXSEED [Concomitant]
     Active Substance: FLAX SEED
  12. HYDROXYZINE HCL [Concomitant]
     Active Substance: HYDROXYZINE HYDROCHLORIDE
  13. POTASSIUM GLUCONATE [Concomitant]
     Active Substance: POTASSIUM GLUCONATE
  14. SILDENAFIL. [Concomitant]
     Active Substance: SILDENAFIL
  15. GLUCOSAMINE [Concomitant]
     Active Substance: GLUCOSAMINE
  16. PARACETAMOL [Concomitant]
     Active Substance: ACETAMINOPHEN
  17. RED YEAST RICE [Concomitant]
     Active Substance: DIETARY SUPPLEMENT
  18. XYREM [Suspect]
     Active Substance: SODIUM OXYBATE
     Dosage: 4.5 G, BID
     Route: 048
     Dates: start: 201808, end: 2018
  19. NIACIN. [Concomitant]
     Active Substance: NIACIN
  20. LEXAPRO [Concomitant]
     Active Substance: ESCITALOPRAM OXALATE
  21. COENZYME Q10 [Concomitant]
     Active Substance: UBIDECARENONE
  22. FUROSEMIDE. [Concomitant]
     Active Substance: FUROSEMIDE
  23. UBIQUINOL [Concomitant]
     Active Substance: UBIQUINOL
  24. TRIAMCINOLONE [Concomitant]
     Active Substance: TRIAMCINOLONE
  25. VITAMIN D3 [Concomitant]
     Active Substance: CHOLECALCIFEROL
  26. XYREM [Suspect]
     Active Substance: SODIUM OXYBATE
     Indication: NARCOLEPSY
     Dosage: 2.25 G, BID
     Route: 048
     Dates: start: 201711, end: 201711
  27. ATENOLOL. [Concomitant]
     Active Substance: ATENOLOL
  28. SINGULAIR [Concomitant]
     Active Substance: MONTELUKAST SODIUM

REACTIONS (2)
  - Multiple allergies [Unknown]
  - Rash pruritic [Recovering/Resolving]

NARRATIVE: CASE EVENT DATE: 201811
